FAERS Safety Report 17431234 (Version 2)
Quarter: 2020Q1

REPORT INFORMATION
  Report Type: Report from Study
  Country: CO (occurrence: CO)
  Receive Date: 20200218
  Receipt Date: 20200319
  Transmission Date: 20200409
  Serious: Yes (Hospitalization)
  Sender: FDA-Public Use
  Company Number: CO-BAYER-2020-028674

PATIENT
  Age: 59 Year
  Sex: Male
  Weight: 68 kg

DRUGS (5)
  1. SUCRALFATE. [Concomitant]
     Active Substance: SUCRALFATE
     Dosage: UNK
  2. FUROSEMIDE. [Concomitant]
     Active Substance: FUROSEMIDE
     Dosage: 1 IN MORNING
  3. SPIRONOLACTONE. [Concomitant]
     Active Substance: SPIRONOLACTONE
     Dosage: UNK
  4. NEXAVAR [Suspect]
     Active Substance: SORAFENIB
     Indication: HEPATOCELLULAR CARCINOMA
     Dosage: 400 MG, QD
     Dates: start: 20200212
  5. NEXAVAR [Suspect]
     Active Substance: SORAFENIB
     Indication: HEPATOCELLULAR CARCINOMA
     Dosage: 400 MG, BID
     Dates: start: 20200103, end: 20200106

REACTIONS (8)
  - Nausea [None]
  - Nausea [Recovered/Resolved]
  - Decreased appetite [Recovered/Resolved]
  - Blood potassium decreased [Recovered/Resolved]
  - Peripheral coldness [Recovered/Resolved]
  - Peripheral coldness [None]
  - Off label use [None]
  - Depressed mood [None]

NARRATIVE: CASE EVENT DATE: 20200103
